FAERS Safety Report 19753071 (Version 11)
Quarter: 2022Q2

REPORT INFORMATION
  Report Type: Other
  Country: JP (occurrence: JP)
  Receive Date: 20210826
  Receipt Date: 20220526
  Transmission Date: 20220721
  Serious: Yes (Hospitalization, Other)
  Sender: FDA-Public Use
  Company Number: JP-CHUGAI-2021011002

PATIENT
  Age: 73 Year
  Sex: Male
  Weight: 73.6 kg

DRUGS (13)
  1. ATEZOLIZUMAB [Suspect]
     Active Substance: ATEZOLIZUMAB
     Indication: Lung adenocarcinoma
     Route: 041
     Dates: start: 20210806
  2. ATEZOLIZUMAB [Suspect]
     Active Substance: ATEZOLIZUMAB
     Route: 041
     Dates: start: 20211006
  3. BEVACIZUMAB [Suspect]
     Active Substance: BEVACIZUMAB
     Indication: Lung adenocarcinoma
     Dosage: 1101 MILLIGRAM, QD
     Route: 041
     Dates: start: 20210806, end: 20210806
  4. BEVACIZUMAB [Suspect]
     Active Substance: BEVACIZUMAB
     Route: 041
     Dates: start: 20210827, end: 20210827
  5. BEVACIZUMAB [Suspect]
     Active Substance: BEVACIZUMAB
     Dosage: 1001 MILLIGRAM, ONCE/3WEEKS
     Route: 041
     Dates: start: 20211006, end: 20211027
  6. BEVACIZUMAB [Suspect]
     Active Substance: BEVACIZUMAB
     Dosage: 988 MILLIGRAM, ONCE/3WEEKS
     Route: 041
     Dates: start: 20211117
  7. CARBOPLATIN [Suspect]
     Active Substance: CARBOPLATIN
     Indication: Lung adenocarcinoma
     Dosage: 595 MG, QD
     Route: 041
     Dates: start: 20210806, end: 20210806
  8. CARBOPLATIN [Suspect]
     Active Substance: CARBOPLATIN
     Dosage: 566 MILLIGRAM, QD
     Route: 041
     Dates: start: 20210827, end: 20210827
  9. CARBOPLATIN [Suspect]
     Active Substance: CARBOPLATIN
     Dosage: 522 MILLIGRAM, ONCE/3WEEKS
     Route: 041
     Dates: start: 20211006, end: 20211027
  10. PACLITAXEL [Suspect]
     Active Substance: PACLITAXEL
     Indication: Lung adenocarcinoma
     Dosage: 328 MILLIGRAM, QD
     Route: 041
     Dates: start: 20210806, end: 20210806
  11. PACLITAXEL [Suspect]
     Active Substance: PACLITAXEL
     Dosage: 323 MILLIGRAM, QD
     Route: 041
     Dates: start: 20210827, end: 20210827
  12. PACLITAXEL [Suspect]
     Active Substance: PACLITAXEL
     Dosage: 314 MILLIGRAM, ONCE/3WEEKS?MOST RECENT DOSE: 27/OCT/2021
     Route: 041
     Dates: start: 20211006
  13. SENNOSIDES [Suspect]
     Active Substance: SENNOSIDES
     Indication: Prophylaxis
     Route: 048
     Dates: start: 20211007

REACTIONS (13)
  - Tongue discomfort [Unknown]
  - Malaise [Recovered/Resolved]
  - Rash [Recovered/Resolved]
  - Taste disorder [Unknown]
  - Constipation [Unknown]
  - Decreased appetite [Recovering/Resolving]
  - Weight decreased [Unknown]
  - White blood cell count decreased [Recovered/Resolved]
  - Oral candidiasis [Recovering/Resolving]
  - Dehydration [Recovered/Resolved]
  - Febrile neutropenia [Recovered/Resolved]
  - Stomatitis [Recovered/Resolved]
  - Decreased appetite [Recovered/Resolved]

NARRATIVE: CASE EVENT DATE: 20210809
